FAERS Safety Report 5838012-3 (Version None)
Quarter: 2008Q3

REPORT INFORMATION
  Report Type: 
  Country: None (occurrence: None)
  Receive Date: 20080808
  Receipt Date: 20080221
  Transmission Date: 20090109
  Serious: No
  Sender: FDA-Public Use
  Company Number: A0711004A

PATIENT
  Age: 67 Year
  Sex: Female

DRUGS (2)
  1. PAXIL [Suspect]
     Indication: MOOD SWINGS
     Dosage: 10MG PER DAY
     Route: 048
     Dates: start: 20080201
  2. NO CONCURRENT MEDICATION [Concomitant]

REACTIONS (1)
  - MYALGIA [None]
